FAERS Safety Report 7345753-8 (Version None)
Quarter: 2011Q1

REPORT INFORMATION
  Report Type: 
  Country: None (occurrence: None)
  Receive Date: 20110308
  Receipt Date: 20110308
  Transmission Date: 20110831
  Serious: Yes (Life-Threatening, Hospitalization)
  Sender: FDA-Public Use
  Company Number: None

PATIENT
  Age: 56 Year
  Sex: Male
  Weight: 86.1834 kg

DRUGS (2)
  1. ABILIFY [Suspect]
     Dosage: 150 MG. DAILY PO
     Route: 048
     Dates: start: 20101214, end: 20110105
  2. ZOLOFT [Suspect]
     Indication: DEPRESSION
     Dosage: 100 MG DAILY PO
     Route: 048
     Dates: start: 20090909, end: 20101015

REACTIONS (11)
  - DRUG INEFFECTIVE [None]
  - AGITATION [None]
  - DRUG WITHDRAWAL SYNDROME [None]
  - HYPOAESTHESIA [None]
  - SUICIDE ATTEMPT [None]
  - CONSTIPATION [None]
  - PARAESTHESIA [None]
  - NAIL DISORDER [None]
  - OVERDOSE [None]
  - AKATHISIA [None]
  - PRODUCT QUALITY ISSUE [None]
